FAERS Safety Report 7759996-2 (Version None)
Quarter: 2011Q3

REPORT INFORMATION
  Report Type: 
  Country: None (occurrence: None)
  Receive Date: 20110919
  Receipt Date: 20110913
  Transmission Date: 20111222
  Serious: Yes (Other)
  Sender: FDA-Public Use
  Company Number: FR-ABBOTT-11P-056-0850089-00

PATIENT
  Sex: Male
  Weight: 79 kg

DRUGS (10)
  1. TARKA [Suspect]
     Indication: HYPERTENSION
     Dates: start: 20110121, end: 20110214
  2. ASPIRIN [Concomitant]
     Indication: PRODUCT USED FOR UNKNOWN INDICATION
     Route: 048
  3. INDAPAMIDE [Suspect]
     Indication: HYPERTENSION
     Route: 048
     Dates: start: 20070101, end: 20110120
  4. ATORVASTATIN CALCIUM [Concomitant]
     Indication: PRODUCT USED FOR UNKNOWN INDICATION
     Route: 048
  5. APROVEL [Concomitant]
     Indication: PRODUCT USED FOR UNKNOWN INDICATION
  6. ATEBEMYXINE [Suspect]
     Indication: PRODUCT USED FOR UNKNOWN INDICATION
     Dosage: EYE DROPS
  7. ACETAMINOPHEN [Concomitant]
     Indication: PRODUCT USED FOR UNKNOWN INDICATION
  8. ISOPTIN [Concomitant]
     Indication: PRODUCT USED FOR UNKNOWN INDICATION
  9. ESOMEPRAZOLE SODIUM [Concomitant]
     Indication: PRODUCT USED FOR UNKNOWN INDICATION
     Route: 048
  10. ZOPICLONE [Concomitant]
     Indication: PRODUCT USED FOR UNKNOWN INDICATION
     Route: 048

REACTIONS (9)
  - LARYNGEAL OEDEMA [None]
  - RENAL CANCER [None]
  - EYELID OEDEMA [None]
  - DRUG INTOLERANCE [None]
  - SWOLLEN TONGUE [None]
  - ANAPHYLACTIC REACTION [None]
  - ANGIOEDEMA [None]
  - TONGUE OEDEMA [None]
  - PHARYNGEAL OEDEMA [None]
